FAERS Safety Report 12818998 (Version 1)
Quarter: 2016Q4

REPORT INFORMATION
  Report Type: Spontaneous
  Country: CN (occurrence: CN)
  Receive Date: 20161006
  Receipt Date: 20161006
  Transmission Date: 20170207
  Serious: Yes (Hospitalization, Other)
  Sender: FDA-Public Use
  Company Number: CN-GLAXOSMITHKLINE-CN2016GSK142556

PATIENT
  Age: 11 Year
  Sex: Male
  Weight: 27 kg

DRUGS (8)
  1. VALPROATE SODIUM. [Suspect]
     Active Substance: VALPROATE SODIUM
     Dosage: 0.2 G, TID
     Route: 048
  2. OXCARBAZEPINE. [Concomitant]
     Active Substance: OXCARBAZEPINE
  3. XIYANPING [Concomitant]
     Active Substance: HERBALS
  4. LAMOTRIGINE. [Suspect]
     Active Substance: LAMOTRIGINE
     Indication: EPILEPSY
     Dosage: 125 MG, BID
  5. AZLOCILLIN SODIUM. [Concomitant]
     Active Substance: AZLOCILLIN SODIUM
  6. GABAPENTIN. [Concomitant]
     Active Substance: GABAPENTIN
  7. IBUPROFEN. [Concomitant]
     Active Substance: IBUPROFEN
  8. CARBAMAZEPINE. [Concomitant]
     Active Substance: CARBAMAZEPINE

REACTIONS (18)
  - Dizziness [Unknown]
  - Coma [Recovering/Resolving]
  - Pyrexia [Unknown]
  - Central nervous system infection [Unknown]
  - Asthenia [Unknown]
  - Pallor [Unknown]
  - Loss of consciousness [Unknown]
  - Electroencephalogram abnormal [Unknown]
  - Cough [Unknown]
  - Myalgia [Unknown]
  - Liver disorder [Unknown]
  - Sinus tachycardia [Unknown]
  - Status epilepticus [Unknown]
  - Muscle twitching [Unknown]
  - Gaze palsy [Unknown]
  - Cyanosis [Unknown]
  - Tic [Unknown]
  - Toxicity to various agents [Unknown]
